FAERS Safety Report 10279630 (Version 1)
Quarter: 2014Q3

REPORT INFORMATION
  Report Type: Spontaneous
  Country: US (occurrence: None)
  Receive Date: 20140701
  Receipt Date: 20140701
  Transmission Date: 20150326
  Serious: Yes (Death, Hospitalization)
  Sender: FDA-Public Use
  Company Number: 153328

PATIENT
  Age: 63 Year
  Sex: Female

DRUGS (1)
  1. CARBOPLATIN INJ. 5ML/VIAL 10MG/ML - BEDFORD LABS, INC. [Suspect]
     Active Substance: CARBOPLATIN
     Indication: MUCINOUS BREAST CARCINOMA

REACTIONS (2)
  - Necrotising fasciitis [None]
  - Multi-organ failure [None]
